FAERS Safety Report 8822561 (Version 1)
Quarter: 2012Q4

REPORT INFORMATION
  Report Type: 
  Country: US (occurrence: US)
  Receive Date: 20121003
  Receipt Date: 20121003
  Transmission Date: 20130627
  Serious: No
  Sender: FDA-Public Use
  Company Number: US-009507513-1208USA002496

PATIENT

DRUGS (2)
  1. PEGINTRON [Suspect]
     Indication: HEPATITIS C
     Dosage: UNK
     Dates: start: 20120605
  2. REBETOL [Suspect]
     Indication: HEPATITIS C
     Dosage: UNK
     Dates: start: 20120605

REACTIONS (11)
  - Full blood count decreased [Unknown]
  - Memory impairment [Unknown]
  - Appetite disorder [Unknown]
  - Dysgeusia [Unknown]
  - Sleep disorder [Unknown]
  - Vomiting [Unknown]
  - Depression [Unknown]
  - Headache [Unknown]
  - Rash [Unknown]
  - Malaise [Unknown]
  - Nausea [Unknown]
